FAERS Safety Report 7391227-8 (Version None)
Quarter: 2011Q1

REPORT INFORMATION
  Report Type: 
  Country: None (occurrence: None)
  Receive Date: 20110324
  Receipt Date: 20110322
  Transmission Date: 20110831
  Serious: Yes (Other)
  Sender: FDA-Public Use
  Company Number: 1000018934

PATIENT
  Age: 71 Year
  Sex: Male

DRUGS (7)
  1. PROPOFOL [Concomitant]
  2. MILNACIPRAN (MILNACIPRAN HYDROCHLORIDE) (TABLETS) [Suspect]
     Indication: DEPRESSION
     Dosage: ORAL
     Route: 048
  3. OXYGEN (OXYGEN) (OXYGEN) [Concomitant]
  4. SEVOFLURANE (SEVOFLURANE) (SVOFLURANE) [Concomitant]
  5. QUETIAPINE FUMARATE [Concomitant]
  6. VECURONIUM BROMIDE (VECURONIUM BROMIDE) (VECURONIUM BROMIDE) [Concomitant]
  7. NITROUS OXIDE (NITROUS OXIDE) (NITROUS OXIDE) [Concomitant]

REACTIONS (1)
  - PROCEDURAL HYPOTENSION [None]
